FAERS Safety Report 6403441-6 (Version None)
Quarter: 2009Q4

REPORT INFORMATION
  Report Type: 
  Country: None (occurrence: None)
  Receive Date: 20091016
  Receipt Date: 20091013
  Transmission Date: 20100525
  Serious: Yes (Death, Other)
  Sender: FDA-Public Use
  Company Number: SI-BRISTOL-MYERS SQUIBB COMPANY-14812044

PATIENT
  Sex: Female

DRUGS (2)
  1. MEGACE [Suspect]
  2. MEGACE [Suspect]

REACTIONS (2)
  - DEATH [None]
  - THROMBOSIS [None]
